FAERS Safety Report 6375231-4 (Version None)
Quarter: 2009Q3

REPORT INFORMATION
  Report Type: 
  Country: None (occurrence: None)
  Receive Date: 20090924
  Receipt Date: 20090909
  Transmission Date: 20100115
  Serious: Yes (Other)
  Sender: FDA-Public Use
  Company Number: AU-PFIZER INC-2009266385

PATIENT

DRUGS (2)
  1. ZOLOFT [Suspect]
     Dosage: 50 MG, ALTERNATE DAY
  2. ZOLOFT [Suspect]
     Dosage: 50 MG, 1X/DAY

REACTIONS (6)
  - ABNORMAL DREAMS [None]
  - AGGRESSION [None]
  - DYSPNOEA [None]
  - INAPPROPRIATE SCHEDULE OF DRUG ADMINISTRATION [None]
  - NIGHT SWEATS [None]
  - PARAESTHESIA [None]
